FAERS Safety Report 10889909 (Version 2)
Quarter: 2017Q2

REPORT INFORMATION
  Report Type: Spontaneous
  Country: JP (occurrence: JP)
  Receive Date: 20150305
  Receipt Date: 20170427
  Transmission Date: 20170829
  Serious: Yes (Death, Life-Threatening)
  Sender: FDA-Public Use
  Company Number: JP-ELI_LILLY_AND_COMPANY-JP201503001607

PATIENT
  Age: 37 Year
  Sex: Female
  Weight: 37 kg

DRUGS (22)
  1. TREPROSTINIL [Suspect]
     Active Substance: TREPROSTINIL
     Indication: PULMONARY ARTERIAL HYPERTENSION
     Dosage: 114.6 NG/KG/MIN
     Route: 042
     Dates: start: 20141203
  2. PROPOFOL. [Concomitant]
     Active Substance: PROPOFOL
     Indication: SEDATION
     Dosage: UNK
     Route: 042
     Dates: start: 20141203
  3. DOPAMINE [Concomitant]
     Active Substance: DOPAMINE\DOPAMINE HYDROCHLORIDE
     Indication: PULMONARY ARTERIAL HYPERTENSION
     Dosage: UNK
     Route: 042
     Dates: start: 20141203
  4. MUCOSTA [Concomitant]
     Active Substance: REBAMIPIDE
     Indication: CHRONIC GASTRITIS
     Dosage: UNK
     Route: 048
     Dates: end: 20141210
  5. ALDACTONE A [Concomitant]
     Active Substance: SPIRONOLACTONE
     Indication: RIGHT VENTRICULAR FAILURE
     Dosage: UNK
     Route: 048
     Dates: end: 20141210
  6. GLIVEC [Concomitant]
     Active Substance: IMATINIB MESYLATE
     Indication: PULMONARY ARTERIAL HYPERTENSION
     Dosage: UNK
     Route: 048
     Dates: end: 20141203
  7. SAMSCA [Concomitant]
     Active Substance: TOLVAPTAN
     Indication: PULMONARY ARTERIAL HYPERTENSION
     Dosage: UNK
     Route: 048
     Dates: start: 20141115, end: 20141209
  8. ALESION [Concomitant]
     Active Substance: EPINASTINE HYDROCHLORIDE
     Indication: ASTHMA
     Dosage: UNK
     Route: 048
     Dates: end: 20141206
  9. CODEINE PHOSPHATE [Concomitant]
     Active Substance: CODEINE PHOSPHATE
     Indication: ASTHMA
     Dosage: UNK
     Route: 048
     Dates: end: 20141210
  10. NAOTAMIN [Suspect]
     Active Substance: NAFAMOSTAT
     Indication: PULMONARY ARTERIAL HYPERTENSION
     Dosage: UNK
     Route: 042
     Dates: start: 20141203
  11. FLUITRAN [Concomitant]
     Active Substance: TRICHLORMETHIAZIDE
     Indication: RIGHT VENTRICULAR FAILURE
     Dosage: UNK
     Route: 048
     Dates: end: 20141225
  12. PAXIL [Concomitant]
     Active Substance: PAROXETINE HYDROCHLORIDE
     Indication: ANXIETY DISORDER
     Dosage: UNK
     Route: 048
     Dates: end: 20141210
  13. SLOW-K [Concomitant]
     Active Substance: POTASSIUM CHLORIDE
     Indication: HYPOKALAEMIA
     Dosage: UNK
     Route: 048
     Dates: end: 20141209
  14. EPOPROSTENOL. [Concomitant]
     Active Substance: EPOPROSTENOL
     Indication: PULMONARY ARTERIAL HYPERTENSION
     Dosage: UNK
     Route: 065
     Dates: start: 200211, end: 20141203
  15. ZYLORIC [Concomitant]
     Active Substance: ALLOPURINOL
     Indication: HYPERURICAEMIA
     Dosage: UNK
     Route: 048
     Dates: end: 20141210
  16. PREDONINE [Concomitant]
     Active Substance: PREDNISOLONE
     Indication: HYPOXIA
     Dosage: UNK
     Route: 065
     Dates: end: 20141225
  17. LUPRAC [Concomitant]
     Active Substance: TORSEMIDE
     Indication: RIGHT VENTRICULAR FAILURE
     Dosage: UNK
     Route: 048
     Dates: end: 20141225
  18. ADCIRCA [Suspect]
     Active Substance: TADALAFIL
     Indication: PULMONARY ARTERIAL HYPERTENSION
     Dosage: 20 MG, BID
     Route: 048
     Dates: start: 20100819
  19. TRACLEER [Suspect]
     Active Substance: BOSENTAN
     Indication: PULMONARY ARTERIAL HYPERTENSION
     Dosage: 62.5 MG, BID
     Route: 048
     Dates: start: 20050701
  20. MIDAZOLAM [Concomitant]
     Active Substance: MIDAZOLAM HYDROCHLORIDE
     Indication: SEDATION
     Dosage: UNK
     Route: 042
     Dates: start: 20141203
  21. NEXIUM [Concomitant]
     Active Substance: ESOMEPRAZOLE MAGNESIUM
     Indication: GASTROOESOPHAGEAL REFLUX DISEASE
     Dosage: UNK
     Route: 048
     Dates: end: 20141210
  22. LASIX [Concomitant]
     Active Substance: FUROSEMIDE
     Indication: RIGHT VENTRICULAR FAILURE
     Dosage: UNK
     Route: 065
     Dates: end: 20141225

REACTIONS (2)
  - Haemoptysis [Fatal]
  - Platelet count decreased [Not Recovered/Not Resolved]

NARRATIVE: CASE EVENT DATE: 20141202
